FAERS Safety Report 25344656 (Version 2)
Quarter: 2025Q2

REPORT INFORMATION
  Report Type: Report from Study
  Country: KR (occurrence: KR)
  Receive Date: 20250522
  Receipt Date: 20250530
  Transmission Date: 20250716
  Serious: Yes (Death)
  Sender: JAZZ
  Company Number: KR-JAZZ PHARMACEUTICALS-2025-KR-012831

PATIENT
  Age: 67 Year
  Sex: Male
  Weight: 48.2 kg

DRUGS (5)
  1. VYXEOS [Suspect]
     Active Substance: CYTARABINE\DAUNORUBICIN
     Indication: Acute myeloid leukaemia
     Route: 042
     Dates: start: 20250424, end: 20250428
  2. MEROPENEM [Concomitant]
     Active Substance: MEROPENEM
     Indication: Pneumonia
     Dosage: 1 GRAM, TID (Q8HR)
     Route: 042
     Dates: start: 20250427, end: 20250505
  3. TEICONIN [Concomitant]
     Indication: Pneumonia
     Route: 042
     Dates: start: 20250428, end: 20250505
  4. VFEND [Concomitant]
     Active Substance: VORICONAZOLE
     Indication: Prophylaxis
     Dosage: 1 DOSAGE FORM, BID
     Route: 048
     Dates: start: 20250424, end: 20250505
  5. GLOBULIN SN GREEN CROSS [Concomitant]
     Indication: Pneumonia
     Dosage: 160 MILLILITER, QD (10 PERCENT 100 ML)
     Route: 042
     Dates: start: 20250503, end: 20250505

REACTIONS (1)
  - Sepsis [Fatal]

NARRATIVE: CASE EVENT DATE: 20250504
